FAERS Safety Report 9641672 (Version 2)
Quarter: 2013Q4

REPORT INFORMATION
  Report Type: Spontaneous
  Country: DE (occurrence: DE)
  Receive Date: 20131023
  Receipt Date: 20131120
  Transmission Date: 20140711
  Serious: Yes (Other)
  Sender: FDA-Public Use
  Company Number: DE-ELI_LILLY_AND_COMPANY-DE201310005492

PATIENT
  Sex: Male

DRUGS (3)
  1. EFIENT [Suspect]
     Indication: STENT PLACEMENT
     Dosage: 60 MG, SINGLE
     Route: 048
  2. EFIENT [Suspect]
     Dosage: 5 MG, QD
     Route: 048
     Dates: start: 201307
  3. ASS [Concomitant]
     Indication: STENT PLACEMENT
     Dosage: 100 MG, UNK
     Route: 048

REACTIONS (2)
  - Thrombosis in device [Recovered/Resolved]
  - Duodenal ulcer haemorrhage [Recovered/Resolved]
